FAERS Safety Report 9358883 (Version 2)
Quarter: 2013Q3

REPORT INFORMATION
  Report Type: Report from Study
  Country: US (occurrence: US)
  Receive Date: 20130620
  Receipt Date: 20130730
  Transmission Date: 20140515
  Serious: Yes (Death, Hospitalization, Other)
  Sender: FDA-Public Use
  Company Number: US-ACTELION-A-US2012-76496

PATIENT
  Age: 46 Year
  Sex: Male

DRUGS (5)
  1. VELETRI [Suspect]
     Indication: PULMONARY ARTERIAL HYPERTENSION
     Dosage: 48 NG/KG, PER MIN
     Route: 042
     Dates: start: 20120821, end: 20130520
  2. VELETRI [Suspect]
     Dosage: 24 NG/KG, PER MIN
     Route: 042
     Dates: start: 20120820
  3. VELETRI [Suspect]
     Dosage: 26 NG/KG, PER MIN
     Route: 042
  4. VELETRI [Suspect]
     Dosage: 2 NG/KG, PER MIN
     Route: 042
     Dates: start: 20120821
  5. VELETRI [Suspect]
     Dosage: 68 NG/KG/MIN
     Route: 042
     Dates: end: 20130612

REACTIONS (13)
  - Renal failure acute [Fatal]
  - Wound infection [Not Recovered/Not Resolved]
  - Peritonitis [Not Recovered/Not Resolved]
  - Malnutrition [Not Recovered/Not Resolved]
  - Insertion of ambulatory peritoneal catheter [Not Recovered/Not Resolved]
  - Anaemia [Not Recovered/Not Resolved]
  - Ascites [Not Recovered/Not Resolved]
  - Paracentesis [Unknown]
  - Condition aggravated [Recovering/Resolving]
  - Lung disorder [Not Recovered/Not Resolved]
  - Abdominal pain [Recovering/Resolving]
  - Oedema [Recovering/Resolving]
  - Malaise [Not Recovered/Not Resolved]
